FAERS Safety Report 7744234-7 (Version None)
Quarter: 2011Q3

REPORT INFORMATION
  Report Type: 
  Country: None (occurrence: None)
  Receive Date: 20110912
  Receipt Date: 20110902
  Transmission Date: 20111222
  Serious: Yes (Other)
  Sender: FDA-Public Use
  Company Number: PHHY2011DE78954

PATIENT
  Age: 49 Year
  Sex: Male

DRUGS (5)
  1. CAMOMILE TEA [Interacting]
     Dosage: UNK
  2. MYCOPHENOLATE MOFETIL [Interacting]
     Indication: IMMUNOSUPPRESSION
  3. STEROIDS NOS [Interacting]
     Indication: IMMUNOSUPPRESSION
  4. HERBAL HOUSEHOLD TEA [Interacting]
  5. TACROLIMUS [Suspect]
     Indication: IMMUNOSUPPRESSION
     Dosage: 2 MG, BID

REACTIONS (6)
  - IMMUNOSUPPRESSANT DRUG LEVEL INCREASED [None]
  - URINE OUTPUT DECREASED [None]
  - HYPERKALAEMIA [None]
  - DRUG INTERACTION [None]
  - COMPLICATIONS OF TRANSPLANTED KIDNEY [None]
  - OLIGURIA [None]
